FAERS Safety Report 8965842 (Version 1)
Quarter: 2012Q4

REPORT INFORMATION
  Report Type: Spontaneous
  Country: US (occurrence: None)
  Receive Date: 20121206
  Receipt Date: 20121206
  Transmission Date: 20130627
  Serious: No
  Sender: FDA-Public Use
  Company Number: 100611-021068

PATIENT
  Sex: Female

DRUGS (2)
  1. SHEER COVER MINERAL FOUNDATION SPF-15 [Suspect]
     Dosage: once dermal
     Dates: start: 20100606
  2. NOURISHING MOISTURIZER WITH SPF 15 [Suspect]
     Dosage: once dermal
     Dates: start: 20100606

REACTIONS (2)
  - Dyspnoea [None]
  - Apparent life threatening event [None]
